FAERS Safety Report 25716219 (Version 1)
Quarter: 2025Q3

REPORT INFORMATION
  Report Type: Spontaneous
  Country: AU (occurrence: AU)
  Receive Date: 20250822
  Receipt Date: 20250822
  Transmission Date: 20251020
  Serious: Yes (Hospitalization)
  Sender: BAYER HEALTHCARE PHARMACEUTICALS INC.
  Company Number: AU-BAYER-2025A107426

PATIENT
  Age: 69 Year
  Sex: Male

DRUGS (2)
  1. GADOBUTROL [Suspect]
     Active Substance: GADOBUTROL
     Indication: Magnetic resonance imaging prostate
     Route: 042
     Dates: start: 20250806, end: 20250806
  2. Cartia [Concomitant]

REACTIONS (7)
  - Pain [Recovered/Resolved]
  - Dizziness [Recovered/Resolved]
  - Posture abnormal [Recovered/Resolved]
  - Pruritus [Recovered/Resolved]
  - Penile pain [Recovered/Resolved]
  - Erythema [Recovered/Resolved]
  - Dyspnoea [Recovered/Resolved]

NARRATIVE: CASE EVENT DATE: 20250806
